FAERS Safety Report 7530342-2 (Version None)
Quarter: 2011Q2

REPORT INFORMATION
  Report Type: 
  Country: None (occurrence: None)
  Receive Date: 20110607
  Receipt Date: 20110606
  Transmission Date: 20111010
  Serious: Yes (Other)
  Sender: FDA-Public Use
  Company Number: US-UCBSA-034444

PATIENT
  Sex: Female

DRUGS (4)
  1. CIMZIA [Suspect]
     Indication: RHEUMATOID ARTHRITIS
     Route: 058
     Dates: start: 20110519
  2. HYDROXYCHLOROQUINE SULFATE [Concomitant]
  3. CELEBREX [Concomitant]
  4. PREDNISONE [Concomitant]

REACTIONS (3)
  - RASH [None]
  - THROAT IRRITATION [None]
  - DYSPNOEA [None]
